FAERS Safety Report 5547013-4 (Version None)
Quarter: 2007Q4

REPORT INFORMATION
  Report Type: 
  Country: None (occurrence: None)
  Receive Date: 20071206
  Receipt Date: 20071121
  Transmission Date: 20080405
  Serious: Yes (Other)
  Sender: FDA-Public Use
  Company Number: 2007JP005391

PATIENT
  Age: 84 Year
  Sex: Female

DRUGS (4)
  1. VESICARE [Suspect]
     Indication: HYPERTONIC BLADDER
     Dosage: 5 MG,  /D, ORAL
     Route: 048
     Dates: start: 20071002
  2. RISPERDAL [Concomitant]
  3. ASPIRIN [Concomitant]
  4. MAGNESIUM OXIDE (MAGNESIUM OXIDE) [Concomitant]

REACTIONS (2)
  - CONDITION AGGRAVATED [None]
  - DEMENTIA [None]
